FAERS Safety Report 8170087 (Version 3)
Quarter: 2013Q4

REPORT INFORMATION
  Report Type: Spontaneous
  Country: GB (occurrence: None)
  Receive Date: 20110923
  Receipt Date: 20131028
  Transmission Date: 20140711
  Serious: Yes (Other)
  Sender: FDA-Public Use
  Company Number: AUR-APL-2011-05016

PATIENT
  Age: 76 Year
  Sex: Female
  Weight: 67 kg

DRUGS (17)
  1. SIMVASTATIN [Suspect]
     Indication: PRODUCT USED FOR UNKNOWN INDICATION
     Dates: start: 20110725, end: 20110822
  2. AQUEOUS CREAM (CETOSTEARYL ALCOHOL) [Concomitant]
  3. BECLOMETHASONE DIPROPIONATE [Concomitant]
  4. CALCICHEW D3 (LEKOVIT CA) [Concomitant]
  5. CLOPIDOGREL [Concomitant]
  6. DOCUSATE SODIUM (DOCUSATE SODIUM) [Concomitant]
  7. GABAPENTIN (GABAPENTIN) [Concomitant]
  8. HYDROXOCOBALAMIN [Concomitant]
  9. HYPROMELLOSE (HYPROMELLOSE) [Concomitant]
  10. LOFEPRAMINE (LOFEPRAMINE) [Concomitant]
  11. MEPTAZINOL (MEPTAZINOL) [Concomitant]
  12. OMEPRAZOLE [Concomitant]
  13. ACETAMINOPHEN [Concomitant]
  14. RAMIPRIL [Concomitant]
  15. SLOZEM (DILTIAZEM HYDROCHLORIDE) [Concomitant]
  16. TRIMETHOPRIM [Concomitant]
  17. ZOPICLONE (ZOPICLONE) [Concomitant]

REACTIONS (2)
  - Contusion [None]
  - Contusion [None]
